FAERS Safety Report 7792897-2 (Version None)
Quarter: 2011Q4

REPORT INFORMATION
  Report Type: 
  Country: None (occurrence: None)
  Receive Date: 20111003
  Receipt Date: 20110918
  Transmission Date: 20120403
  Serious: Yes (Other)
  Sender: FDA-Public Use
  Company Number: PHHY2011DE83360

PATIENT
  Sex: Male

DRUGS (7)
  1. MELPHALAN HYDROCHLORIDE [Concomitant]
     Dosage: UNK UKN, UNK
  2. ALEMTUZUMAB [Concomitant]
     Dosage: UNK UKN, UNK
  3. BIS-CHLORETHYL-NITROSO-UREA [Concomitant]
     Dosage: UNK UKN, UNK
  4. CYCLOSPORINE [Suspect]
     Indication: GRAFT VERSUS HOST DISEASE
     Dosage: UNK UKN, UNK
  5. METHOTREXATE [Concomitant]
     Dosage: 15 MG/WEEK
  6. PREDNISONE [Concomitant]
     Dosage: 20 MG/ DAY
  7. FLUDARABINE PHOSPHATE [Concomitant]
     Dosage: UNK UKN, UNK

REACTIONS (8)
  - BLOOD IMMUNOGLOBULIN M DECREASED [None]
  - ANAEMIA [None]
  - BLOOD IMMUNOGLOBULIN A DECREASED [None]
  - BACTERIAL INFECTION [None]
  - LYMPHADENOPATHY [None]
  - SPLENOMEGALY [None]
  - ACUTE GRAFT VERSUS HOST DISEASE IN INTESTINE [None]
  - PNEUMONIA [None]
